FAERS Safety Report 19272912 (Version 3)
Quarter: 2023Q1

REPORT INFORMATION
  Report Type: Spontaneous
  Country: GB (occurrence: GB)
  Receive Date: 20210518
  Receipt Date: 20230207
  Transmission Date: 20230418
  Serious: Yes (Death, Life-Threatening, Hospitalization, Other)
  Sender: FDA-Public Use
  Company Number: GB-SA-2021SA015381

PATIENT
  Age: 75 Year
  Sex: Female

DRUGS (32)
  1. MIDAZOLAM [Suspect]
     Active Substance: MIDAZOLAM
     Indication: Muscle spasms
     Dosage: UNK
     Route: 042
     Dates: start: 200203, end: 200203
  2. MIDAZOLAM [Suspect]
     Active Substance: MIDAZOLAM
     Indication: Induction of anaesthesia
  3. ARAVA [Suspect]
     Active Substance: LEFLUNOMIDE
     Indication: Rheumatoid arthritis
     Dosage: 20 MG (MILLIGRAM) ONCE IN 0.2 DAY. DOSAGE TEXT: 20 MG QD
     Route: 065
     Dates: start: 200203, end: 200203
  4. ARAVA [Suspect]
     Active Substance: LEFLUNOMIDE
     Dosage: RESUMED AFTER 2 DAYS OF SURGERY
     Route: 065
  5. ASPIRIN [Suspect]
     Active Substance: ASPIRIN
     Indication: Angina pectoris
     Dosage: UNK
     Route: 065
     Dates: start: 200203
  6. ASPIRIN [Suspect]
     Active Substance: ASPIRIN
     Dosage: RESUMED AFTER 2 DAYS OF SURGERY
     Route: 065
  7. ATORVASTATIN [Suspect]
     Active Substance: ATORVASTATIN
     Indication: Hypercholesterolaemia
     Dosage: UNK
     Route: 065
     Dates: start: 1999
  8. ATORVASTATIN [Suspect]
     Active Substance: ATORVASTATIN
     Dosage: RESUMED AFTER 2 DAYS OF SURGERY
     Route: 065
  9. BUDESONIDE [Suspect]
     Active Substance: BUDESONIDE
     Indication: Asthma
     Dosage: UNK
     Route: 055
     Dates: start: 201903
  10. BUDESONIDE [Suspect]
     Active Substance: BUDESONIDE
     Dosage: RESUMED AFTER 2 DAYS OF SURGERY
     Route: 055
  11. BUDESONIDE [Suspect]
     Active Substance: BUDESONIDE
     Indication: Product used for unknown indication
     Dosage: UNK
     Route: 065
  12. COCODAMOL [Suspect]
     Active Substance: ACETAMINOPHEN\CODEINE PHOSPHATE
     Indication: Rheumatoid arthritis
     Dosage: UNK
     Route: 065
     Dates: start: 200203
  13. DILTIAZEM HYDROCHLORIDE [Suspect]
     Active Substance: DILTIAZEM HYDROCHLORIDE
     Indication: Hypertension
     Dosage: UNK
     Route: 065
     Dates: start: 200203
  14. FENTANYL [Suspect]
     Active Substance: FENTANYL
     Indication: Induction of anaesthesia
     Dosage: UNK
     Route: 042
     Dates: start: 200203, end: 200203
  15. FENTANYL CITRATE [Suspect]
     Active Substance: FENTANYL CITRATE
     Indication: Induction of anaesthesia
     Dosage: UNK
     Route: 042
     Dates: start: 200203, end: 200203
  16. NITROGLYCERIN [Suspect]
     Active Substance: NITROGLYCERIN
     Indication: Angina pectoris
     Dosage: UNK
     Route: 048
     Dates: start: 200203, end: 200203
  17. LISINOPRIL [Suspect]
     Active Substance: LISINOPRIL
     Indication: Hypertension
     Dosage: UNK
     Route: 048
     Dates: start: 200203
  18. LISINOPRIL [Suspect]
     Active Substance: LISINOPRIL
     Dosage: RESUMED ON DAY 5 TABLET
     Route: 048
  19. PANCURONIUM [Suspect]
     Active Substance: PANCURONIUM
     Indication: Muscle spasms
     Dosage: UNK
     Route: 065
     Dates: start: 200203, end: 200203
  20. PANCURONIUM BROMIDE [Suspect]
     Active Substance: PANCURONIUM BROMIDE
     Indication: Muscle spasms
     Dosage: UNK
     Route: 065
     Dates: start: 200203
  21. QUININE SULFATE [Suspect]
     Active Substance: QUININE SULFATE
     Indication: Muscle spasms
     Dosage: UNK
     Route: 065
  22. QUININE SULFATE [Suspect]
     Active Substance: QUININE SULFATE
     Dosage: RESUMED WITHIN 2 DAYS AFTER SURGERY TABLET
     Route: 065
  23. AMOXICILLIN [Suspect]
     Active Substance: AMOXICILLIN
     Indication: Product used for unknown indication
     Dosage: UNK
     Route: 065
  24. LANSOPRAZOLE [Suspect]
     Active Substance: LANSOPRAZOLE
     Indication: Duodenal ulcer
     Dosage: UNK
     Route: 065
     Dates: start: 200203
  25. LANSOPRAZOLE [Suspect]
     Active Substance: LANSOPRAZOLE
     Dosage: RESUMED AFTER 2 DAYS OF SURGERY
     Route: 065
  26. CLARITHROMYCIN [Suspect]
     Active Substance: CLARITHROMYCIN
     Indication: Product used for unknown indication
     Dosage: UNK
     Route: 065
  27. PROPOFOL [Suspect]
     Active Substance: PROPOFOL
     Indication: Induction of anaesthesia
     Dosage: UNK
     Route: 042
     Dates: start: 200203, end: 200203
  28. DILTIAZEM [Concomitant]
     Active Substance: DILTIAZEM
     Indication: Hypertension
     Dosage: UNK
     Route: 065
  29. DIPRIVAN [Concomitant]
     Active Substance: PROPOFOL
     Indication: Anaesthesia procedure
     Dosage: UNK
     Route: 042
  30. DIPRIVAN [Concomitant]
     Active Substance: PROPOFOL
     Dosage: UNK
     Route: 065
  31. DIPRIVAN [Concomitant]
     Active Substance: PROPOFOL
     Dosage: UNK
     Route: 065
  32. PROPOFOL [Concomitant]
     Active Substance: PROPOFOL
     Indication: Anaesthesia procedure
     Dosage: UNK
     Route: 042

REACTIONS (16)
  - Hepatic ischaemia [Fatal]
  - Gastrointestinal haemorrhage [Fatal]
  - Coagulopathy [Fatal]
  - Haematemesis [Fatal]
  - Hypovolaemia [Fatal]
  - Hepatorenal syndrome [Fatal]
  - Ulcer [Fatal]
  - Hepatic failure [Fatal]
  - Hepatocellular injury [Fatal]
  - Gastritis haemorrhagic [Fatal]
  - Labile blood pressure [Fatal]
  - Muscle relaxant therapy [Fatal]
  - Coronary artery bypass [Fatal]
  - Post procedural haemorrhage [Fatal]
  - Renal impairment [Fatal]
  - Renal failure [Fatal]
